FAERS Safety Report 25632482 (Version 1)
Quarter: 2025Q3

REPORT INFORMATION
  Report Type: Spontaneous
  Country: US (occurrence: US)
  Receive Date: 20250801
  Receipt Date: 20250801
  Transmission Date: 20251021
  Serious: No
  Sender: MYLAN
  Company Number: US-MYLANLABS-2025M1065344

PATIENT
  Age: 81 Year
  Sex: Male

DRUGS (16)
  1. TOLTERODINE [Suspect]
     Active Substance: TOLTERODINE
     Indication: Product used for unknown indication
  2. TOLTERODINE [Suspect]
     Active Substance: TOLTERODINE
     Route: 065
  3. TOLTERODINE [Suspect]
     Active Substance: TOLTERODINE
     Route: 065
  4. TOLTERODINE [Suspect]
     Active Substance: TOLTERODINE
  5. INGREZZA [Suspect]
     Active Substance: VALBENAZINE DITOSYLATE
     Indication: Tardive dyskinesia
     Dosage: 80 MILLIGRAM, QD (DAILY)
  6. INGREZZA [Suspect]
     Active Substance: VALBENAZINE DITOSYLATE
     Dosage: 80 MILLIGRAM, QD (DAILY)
     Route: 048
  7. INGREZZA [Suspect]
     Active Substance: VALBENAZINE DITOSYLATE
     Dosage: 80 MILLIGRAM, QD (DAILY)
     Route: 048
  8. INGREZZA [Suspect]
     Active Substance: VALBENAZINE DITOSYLATE
     Dosage: 80 MILLIGRAM, QD (DAILY)
  9. INGREZZA [Suspect]
     Active Substance: VALBENAZINE DITOSYLATE
     Dosage: 60 MILLIGRAM, QD (DAILY)
  10. INGREZZA [Suspect]
     Active Substance: VALBENAZINE DITOSYLATE
     Dosage: 60 MILLIGRAM, QD (DAILY)
     Route: 048
  11. INGREZZA [Suspect]
     Active Substance: VALBENAZINE DITOSYLATE
     Dosage: 60 MILLIGRAM, QD (DAILY)
  12. INGREZZA [Suspect]
     Active Substance: VALBENAZINE DITOSYLATE
     Dosage: 60 MILLIGRAM, QD (DAILY)
     Route: 048
  13. INGREZZA [Suspect]
     Active Substance: VALBENAZINE DITOSYLATE
     Dosage: 40 MILLIGRAM, QD (DAILY)
     Route: 048
  14. INGREZZA [Suspect]
     Active Substance: VALBENAZINE DITOSYLATE
     Dosage: 40 MILLIGRAM, QD (DAILY)
     Route: 048
  15. INGREZZA [Suspect]
     Active Substance: VALBENAZINE DITOSYLATE
     Dosage: 40 MILLIGRAM, QD (DAILY)
  16. INGREZZA [Suspect]
     Active Substance: VALBENAZINE DITOSYLATE
     Dosage: 40 MILLIGRAM, QD (DAILY)

REACTIONS (3)
  - Dyskinesia [Recovered/Resolved]
  - Balance disorder [Unknown]
  - Gait disturbance [Unknown]
